FAERS Safety Report 4428328-X (Version None)
Quarter: 2004Q3

REPORT INFORMATION
  Report Type: 
  Country: None (occurrence: None)
  Receive Date: 20040818
  Receipt Date: 20040806
  Transmission Date: 20050211
  Serious: Yes (Hospitalization)
  Sender: FDA-Public Use
  Company Number: US-JNJFOC-20040802689

PATIENT
  Sex: Female

DRUGS (14)
  1. INFLIXIMAB [Suspect]
     Route: 042
  2. INFLIXIMAB [Suspect]
     Route: 042
  3. INFLIXIMAB [Suspect]
     Route: 042
  4. INFLIXIMAB [Suspect]
     Route: 042
  5. INFLIXIMAB [Suspect]
     Indication: RHEUMATOID ARTHRITIS
     Route: 042
  6. PREDNISONE [Concomitant]
  7. CELEBREX [Concomitant]
  8. EFFEXOR [Concomitant]
  9. LASIX [Concomitant]
  10. ASPIRIN [Concomitant]
  11. ENALAPRIL MALEATE [Concomitant]
  12. POTASSIUM [Concomitant]
  13. TOPROL-XL [Concomitant]
  14. ALBUTEROL [Concomitant]

REACTIONS (3)
  - CARDIAC FAILURE CONGESTIVE [None]
  - PARALYSIS [None]
  - WHEEZING [None]
